FAERS Safety Report 12937231 (Version 7)
Quarter: 2017Q1

REPORT INFORMATION
  Report Type: Spontaneous
  Country: US (occurrence: US)
  Receive Date: 20161114
  Receipt Date: 20170331
  Transmission Date: 20170428
  Serious: Yes (Hospitalization, Disabling)
  Sender: FDA-Public Use
  Company Number: US-PFIZER INC-2016524516

PATIENT
  Age: 82 Year
  Sex: Male
  Weight: 90 kg

DRUGS (13)
  1. DILAUDID [Concomitant]
     Active Substance: HYDROMORPHONE HYDROCHLORIDE
     Dosage: UNK
     Dates: end: 201612
  2. SENNA [Concomitant]
     Active Substance: SENNA LEAF\SENNOSIDES\SENNOSIDES A AND B
     Dosage: UNK, AS NEEDED
  3. MIRACLE MOUTH WASH [Concomitant]
     Active Substance: UNSPECIFIED INGREDIENT
     Dosage: UNK
  4. SUTENT [Suspect]
     Active Substance: SUNITINIB MALATE
     Indication: RENAL CANCER METASTATIC
     Dosage: 50 MG, CYCLIC [28 DAYS ON/14 DAYS OFF]
     Dates: start: 20161024, end: 20161212
  5. SUTENT [Suspect]
     Active Substance: SUNITINIB MALATE
     Dosage: 50 MG, UNK
     Dates: start: 2016, end: 20161224
  6. POTASSIUM [Concomitant]
     Active Substance: POTASSIUM
     Dosage: UNK
  7. METHADONE [Concomitant]
     Active Substance: METHADONE HYDROCHLORIDE
     Dosage: UNK
  8. MORPHINE [Concomitant]
     Active Substance: MORPHINE
     Dosage: UNK
     Dates: end: 20161224
  9. ZANAFLEX [Concomitant]
     Active Substance: TIZANIDINE HYDROCHLORIDE
     Dosage: UNK
     Dates: end: 20161224
  10. MAGNESIUM OXIDE. [Concomitant]
     Active Substance: MAGNESIUM OXIDE
     Dosage: UNK
     Dates: end: 20161214
  11. GABAPENTIN. [Concomitant]
     Active Substance: GABAPENTIN
     Dosage: UNK
     Dates: end: 20161224
  12. LISINOPRIL. [Concomitant]
     Active Substance: LISINOPRIL
     Dosage: UNK
  13. STOOL SOFTENER (DOCUSATE) [Concomitant]
     Active Substance: DOCUSATE
     Dosage: UNK

REACTIONS (27)
  - Myocardial infarction [Recovered/Resolved]
  - Urinary tract infection [Recovered/Resolved]
  - Pneumonia [Recovered/Resolved]
  - Oesophageal rupture [Recovered/Resolved]
  - Balance disorder [Not Recovered/Not Resolved]
  - Appetite disorder [Recovered/Resolved]
  - Hyperkeratosis [Recovered/Resolved]
  - Back pain [Not Recovered/Not Resolved]
  - Wound secretion [Recovered/Resolved]
  - Confusional state [Recovered/Resolved]
  - Vomiting [Recovered/Resolved]
  - Scratch [Not Recovered/Not Resolved]
  - Urinary incontinence [Recovered/Resolved]
  - Dysarthria [Recovered/Resolved]
  - Cerebrovascular accident [Unknown]
  - Night sweats [Not Recovered/Not Resolved]
  - Constipation [Not Recovered/Not Resolved]
  - Fall [Not Recovered/Not Resolved]
  - Hypertension [Unknown]
  - Platelet count decreased [Unknown]
  - Hypoaesthesia [Recovered/Resolved]
  - Unresponsive to stimuli [Recovered/Resolved]
  - Oedema peripheral [Recovered/Resolved]
  - Weight fluctuation [Recovered/Resolved]
  - Gait disturbance [Recovered/Resolved]
  - Diarrhoea [Unknown]
  - Weight decreased [Recovered/Resolved]

NARRATIVE: CASE EVENT DATE: 201612
